FAERS Safety Report 21499690 (Version 3)
Quarter: 2022Q4

REPORT INFORMATION
  Report Type: Spontaneous
  Country: MX (occurrence: MX)
  Receive Date: 20221024
  Receipt Date: 20221121
  Transmission Date: 20230113
  Serious: Yes (Other)
  Sender: FDA-Public Use
  Company Number: MX-UPSHER-SMITH LABORATORIES, LLC-2022USL00834

PATIENT
  Age: 4 Year
  Sex: Male

DRUGS (1)
  1. TESTOSTERONE [Suspect]
     Active Substance: TESTOSTERONE
     Dosage: UNK
     Route: 061
     Dates: end: 2022

REACTIONS (2)
  - Accidental exposure to product [Recovered/Resolved]
  - Precocious puberty [Recovering/Resolving]

NARRATIVE: CASE EVENT DATE: 20210101
